FAERS Safety Report 8491192-6 (Version None)
Quarter: 2012Q2

REPORT INFORMATION
  Report Type: 
  Country: None (occurrence: None)
  Receive Date: 20120402
  Receipt Date: 20110309
  Transmission Date: 20120825
  Serious: Yes (Hospitalization)
  Sender: FDA-Public Use
  Company Number: A-US2011-46151

PATIENT
  Age: 48 Year
  Sex: Female

DRUGS (4)
  1. EPOPROSTENOL SODIUM [Suspect]
     Indication: PULMONARY ARTERIAL HYPERTENSION
     Dosage: 46 NG/KG/MIN, INTRAVENOUS
     Route: 042
     Dates: start: 20100603
  2. VENTAVIS [Concomitant]
  3. AMBRISENTAN (AMBRISENTAN) [Concomitant]
  4. COUMADIN [Concomitant]

REACTIONS (2)
  - DEVICE RELATED INFECTION [None]
  - OEDEMA [None]
